FAERS Safety Report 15814853 (Version 1)
Quarter: 2019Q1

REPORT INFORMATION
  Report Type: Spontaneous
  Country: DE (occurrence: DE)
  Receive Date: 20190111
  Receipt Date: 20190111
  Transmission Date: 20190417
  Serious: Yes (Life-Threatening, Hospitalization, Disabling, Other)
  Sender: FDA-Public Use
  Company Number: DE-ACCORD-101806

PATIENT
  Age: 53 Year
  Sex: Female

DRUGS (14)
  1. MAGNESIUM BRAUSE [Concomitant]
  2. TROSPIUM CHLORIDE. [Concomitant]
     Active Substance: TROSPIUM CHLORIDE
     Dosage: DAILY DOSE: 30 MG MILLGRAM(S) EVERY DAYS
     Dates: start: 201701
  3. FAMPRIDINE [Concomitant]
     Active Substance: DALFAMPRIDINE
  4. GABAPENTIN. [Concomitant]
     Active Substance: GABAPENTIN
     Dosage: DAILY DOSE: 1800 MG MILLGRAM(S) EVERY DAYS
     Dates: start: 201704
  5. AMITRIPTYLINE [Concomitant]
     Active Substance: AMITRIPTYLINE
     Dosage: 0-0-0-1
     Dates: start: 201711
  6. TIZANIDINE/TIZANIDINE HYDROCHLORIDE [Suspect]
     Active Substance: TIZANIDINE\TIZANIDINE HYDROCHLORIDE
     Indication: MULTIPLE SCLEROSIS
     Dosage: 2 MG 1-1-1
     Route: 048
     Dates: start: 201706
  7. AMITRIPTYLINE [Suspect]
     Active Substance: AMITRIPTYLINE
     Indication: PRODUCT USED FOR UNKNOWN INDICATION
     Route: 048
  8. CLEXANE [Concomitant]
     Active Substance: ENOXAPARIN SODIUM
     Dosage: DAILY DOSE: 40 MG MILLGRAM(S) EVERY DAYS
     Dates: start: 201709
  9. TERIFLUNOMIDE. [Suspect]
     Active Substance: TERIFLUNOMIDE
     Indication: MULTIPLE SCLEROSIS
     Route: 048
     Dates: start: 201506
  10. CALCIUM/VITAMIN [Concomitant]
     Dosage: DAILY DOSE: 1 DF DOSAGE FORM EVERY DAYS
     Dates: start: 201706
  11. BACLOFEN. [Concomitant]
     Active Substance: BACLOFEN
     Dosage: DAILY DOSE: 60 MG MILLGRAM(S) EVERY DAYS
     Dates: start: 201612
  12. TILIDIN [Concomitant]
     Active Substance: NALOXONE HYDROCHLORIDE\TILIDINE HYDROCHLORIDE
     Dosage: DAILY DOSE: 3 DF DOSAGE FORM EVERY DAYS
     Dates: start: 201711, end: 201711
  13. VENLAFAXINE/VENLAFAXINE HYDROCHLORIDE [Suspect]
     Active Substance: VENLAFAXINE HYDROCHLORIDE
     Indication: PRODUCT USED FOR UNKNOWN INDICATION
     Dosage: UNBEKANNT
     Route: 048
     Dates: start: 201711, end: 201712
  14. PANTOPRAZOLE [Concomitant]
     Active Substance: PANTOPRAZOLE
     Dosage: DAILY DOSE: 40 MG MILLGRAM(S) EVERY DAYS

REACTIONS (2)
  - Hepatic failure [Recovered/Resolved with Sequelae]
  - Drug-induced liver injury [Unknown]

NARRATIVE: CASE EVENT DATE: 20180101
